FAERS Safety Report 5788884-6 (Version None)
Quarter: 2008Q2

REPORT INFORMATION
  Report Type: 
  Country: None (occurrence: None)
  Receive Date: 20080626
  Receipt Date: 20071228
  Transmission Date: 20081010
  Serious: No
  Sender: FDA-Public Use
  Company Number: US-ASTRAZENECA-2008UW00140

PATIENT
  Age: 82 Year
  Sex: Female
  Weight: 47.2 kg

DRUGS (5)
  1. PULMICORT [Suspect]
     Indication: CHRONIC OBSTRUCTIVE PULMONARY DISEASE
     Route: 055
     Dates: start: 20000101
  2. VITAMIN D + CALCIUM [Concomitant]
  3. COMBIVENT [Concomitant]
  4. VANCERIL [Concomitant]
     Dosage: 2 PUFFS BID
  5. PROVENTIL [Concomitant]

REACTIONS (2)
  - CATARACT [None]
  - OSTEOPOROSIS [None]
